FAERS Safety Report 4319293-4 (Version None)
Quarter: 2004Q1

REPORT INFORMATION
  Report Type: 
  Country: None (occurrence: None)
  Receive Date: 20040318
  Receipt Date: 20040318
  Transmission Date: 20041129
  Serious: Yes (Hospitalization)
  Sender: FDA-Public Use
  Company Number: None

PATIENT
  Age: 71 Year
  Sex: Male
  Weight: 95 kg

DRUGS (12)
  1. ZOCOR [Suspect]
     Indication: CORONARY ARTERY DISEASE
     Dosage: 10MG QHS ORAL
     Route: 048
     Dates: start: 20030926, end: 20031023
  2. ZOCOR [Suspect]
     Indication: DIABETES MELLITUS NON-INSULIN-DEPENDENT
     Dosage: 10MG QHS ORAL
     Route: 048
     Dates: start: 20030926, end: 20031023
  3. ZOCOR [Suspect]
     Indication: HYPERLIPIDAEMIA
     Dosage: 10MG QHS ORAL
     Route: 048
     Dates: start: 20030926, end: 20031023
  4. METFORMIN HCL [Concomitant]
  5. GLYBURIDE [Concomitant]
  6. INSULIN [Concomitant]
  7. ASPIRIN [Concomitant]
  8. FOSINOPRIL SODIUM [Concomitant]
  9. TRAMADOL HCL [Concomitant]
  10. GEMFIBROZIL [Concomitant]
  11. LORATADINE [Concomitant]
  12. MVI CALCIUM [Concomitant]

REACTIONS (1)
  - MYALGIA [None]
